FAERS Safety Report 7973199 (Version 3)
Quarter: 2012Q4

REPORT INFORMATION
  Report Type: Report from Study
  Country: DE (occurrence: DE)
  Receive Date: 20110603
  Receipt Date: 20121219
  Transmission Date: 20130627
  Serious: Yes (Other)
  Sender: FDA-Public Use
  Company Number: DE-JNJFOC-20110412245

PATIENT
  Age: 44 Year
  Sex: Male
  Weight: 68 kg

DRUGS (10)
  1. PALEXIA [Suspect]
     Indication: BACK PAIN
     Route: 048
     Dates: start: 20101208, end: 20101214
  2. PALEXIA [Suspect]
     Indication: BACK PAIN
     Route: 048
     Dates: start: 20110110, end: 20110415
  3. PALEXIA [Suspect]
     Indication: BACK PAIN
     Route: 048
     Dates: start: 20101214, end: 201012
  4. ZOPICLONE [Concomitant]
     Indication: SLEEP DISORDER
     Route: 065
  5. OXYCODON [Concomitant]
     Indication: PAIN
     Dosage: 40 mg/d
     Route: 065
     Dates: start: 20101201, end: 20101208
  6. OXYCODON [Concomitant]
     Indication: PAIN
     Route: 065
     Dates: start: 201002, end: 201009
  7. OXYCODON [Concomitant]
     Indication: PAIN
     Route: 065
     Dates: start: 201009, end: 20101201
  8. OXYCODON [Concomitant]
     Indication: PAIN
     Route: 065
     Dates: start: 20101210, end: 20101217
  9. OXYCODON [Concomitant]
     Indication: PAIN
     Route: 065
     Dates: start: 20101218
  10. NSAIDS [Concomitant]
     Indication: PAIN
     Route: 065

REACTIONS (3)
  - Personality change [Recovered/Resolved]
  - Abnormal behaviour [Recovered/Resolved]
  - Mental impairment [Recovered/Resolved]
